FAERS Safety Report 6105779-9 (Version None)
Quarter: 2009Q1

REPORT INFORMATION
  Report Type: 
  Country: None (occurrence: None)
  Receive Date: 20090304
  Receipt Date: 20090304
  Transmission Date: 20090719
  Serious: No
  Sender: FDA-Public Use
  Company Number: None

PATIENT
  Sex: Female
  Weight: 29.4838 kg

DRUGS (1)
  1. NIX [Suspect]
     Indication: LICE INFESTATION
     Dosage: 2OZ - 3WEEKS APART
     Dates: start: 20090110, end: 20090216

REACTIONS (3)
  - ALOPECIA [None]
  - DISEASE RECURRENCE [None]
  - LICE INFESTATION [None]
